FAERS Safety Report 6983142-6 (Version None)
Quarter: 2010Q3

REPORT INFORMATION
  Report Type: 
  Country: None (occurrence: None)
  Receive Date: 20100910
  Receipt Date: 20100902
  Transmission Date: 20110219
  Serious: Yes (Hospitalization)
  Sender: FDA-Public Use
  Company Number: TPA2010A04822

PATIENT
  Age: 73 Year
  Sex: Male

DRUGS (1)
  1. DEXILANT [Suspect]
     Dosage: 60 MG, 1 IN 1 D

REACTIONS (2)
  - CARDIAC DISORDER [None]
  - TRANSIENT ISCHAEMIC ATTACK [None]
